FAERS Safety Report 17891918 (Version 1)
Quarter: 2020Q2

REPORT INFORMATION
  Report Type: Spontaneous
  Country: TR (occurrence: TR)
  Receive Date: 20200612
  Receipt Date: 20200612
  Transmission Date: 20200714
  Serious: Yes (Death, Hospitalization)
  Sender: FDA-Public Use
  Company Number: NVSC2020TR164675

PATIENT
  Age: 49 Year
  Sex: Female

DRUGS (7)
  1. CARBAMAZEPINE. [Suspect]
     Active Substance: CARBAMAZEPINE
     Indication: PRIMARY FAMILIAL BRAIN CALCIFICATION
     Dosage: 2000 MG
     Route: 065
  2. DEXMEDETOMIDINE. [Concomitant]
     Active Substance: DEXMEDETOMIDINE
     Indication: SEDATION
     Dosage: 0.2 MCG/KG
     Route: 041
  3. DEXMEDETOMIDINE. [Concomitant]
     Active Substance: DEXMEDETOMIDINE
     Dosage: 1.5 MCG/KG
     Route: 041
  4. QUETIAPINE. [Suspect]
     Active Substance: QUETIAPINE
     Indication: PRIMARY FAMILIAL BRAIN CALCIFICATION
     Dosage: 200 MG
     Route: 065
  5. CALCIUM [Suspect]
     Active Substance: CALCIUM
     Indication: PRIMARY FAMILIAL BRAIN CALCIFICATION
     Dosage: UNK
     Route: 048
  6. MIDAZOLAM. [Concomitant]
     Active Substance: MIDAZOLAM
     Dosage: 1.5 MG (BOLUS)
     Route: 065
  7. MIDAZOLAM. [Concomitant]
     Active Substance: MIDAZOLAM
     Indication: SEDATION
     Dosage: 2 MG (BOLUS)
     Route: 065

REACTIONS (5)
  - Product use in unapproved indication [Unknown]
  - Suicidal ideation [Fatal]
  - Sepsis [Fatal]
  - Intentional overdose [Fatal]
  - Acute respiratory distress syndrome [Fatal]
